FAERS Safety Report 9782059 (Version 1)
Quarter: 2013Q4

REPORT INFORMATION
  Report Type: Spontaneous
  Country: TW (occurrence: TW)
  Receive Date: 20131226
  Receipt Date: 20131226
  Transmission Date: 20140711
  Serious: Yes (Other)
  Sender: FDA-Public Use
  Company Number: TW-AMGEN-TWNSP2013090466

PATIENT
  Sex: Male

DRUGS (2)
  1. ENBREL [Suspect]
     Indication: PRODUCT USED FOR UNKNOWN INDICATION
     Dosage: UNK
     Route: 065
     Dates: start: 20120502
  2. ENBREL [Suspect]
     Dosage: 25 MG, MONTHLY
     Route: 065

REACTIONS (3)
  - Pulmonary fibrosis [Unknown]
  - Cough [Unknown]
  - Bronchial hyperreactivity [Unknown]
